FAERS Safety Report 8676277 (Version 4)
Quarter: 2012Q4

REPORT INFORMATION
  Report Type: 
  Country: JP (occurrence: JP)
  Receive Date: 20120720
  Receipt Date: 20120914
  Transmission Date: 20130627
  Serious: Yes (Hospitalization)
  Sender: FDA-Public Use
  Company Number: JP-AMGEN-JPNCT2012045098

PATIENT
  Age: 51 Year
  Sex: Female
  Weight: 66 kg

DRUGS (9)
  1. DENOSUMAB [Suspect]
     Indication: RHEUMATOID ARTHRITIS
     Dosage: UNK
     Route: 058
     Dates: start: 20110617, end: 20120413
  2. BLINDED PLACEBO [Suspect]
     Indication: RHEUMATOID ARTHRITIS
     Dosage: UNK
     Route: 058
     Dates: start: 20110617, end: 20120413
  3. RHEUMATREX [Concomitant]
     Indication: RHEUMATOID ARTHRITIS
     Dosage: 10 mg, qwk
     Route: 048
     Dates: start: 2008, end: 20120615
  4. FOLIAMIN [Concomitant]
     Indication: PROPHYLAXIS
     Dosage: 5 mg, qwk
     Route: 048
     Dates: start: 2008
  5. PREDONINE [Concomitant]
     Indication: RHEUMATOID ARTHRITIS
     Dosage: 5 mg, qd
     Route: 048
     Dates: start: 2008
  6. CELECOX [Concomitant]
     Indication: RHEUMATOID ARTHRITIS
     Dosage: 100 mg, qd
     Route: 048
     Dates: start: 2008
  7. LORFENAMIN [Concomitant]
     Indication: RHEUMATOID ARTHRITIS
     Dosage: 60 mg, bid
     Route: 048
     Dates: start: 20111212
  8. VONAFEC [Concomitant]
     Indication: RHEUMATOID ARTHRITIS
     Dosage: 50 mg, prn
     Route: 054
     Dates: start: 20120217
  9. CALCICHEW D3 [Concomitant]
     Indication: PRODUCT USED FOR UNKNOWN INDICATION
     Dosage: UNK UNK, qd
     Route: 048
     Dates: start: 20110524

REACTIONS (1)
  - Renal cell carcinoma [Not Recovered/Not Resolved]
